FAERS Safety Report 19047333 (Version 3)
Quarter: 2021Q2

REPORT INFORMATION
  Report Type: Spontaneous
  Country: JP (occurrence: JP)
  Receive Date: 20210323
  Receipt Date: 20210617
  Transmission Date: 20210717
  Serious: Yes (Other)
  Sender: FDA-Public Use
  Company Number: JP-BAYER-2021-109189

PATIENT
  Age: 81 Year
  Sex: Male

DRUGS (2)
  1. STIVARGA [Suspect]
     Active Substance: REGORAFENIB
     Indication: COLON CANCER
     Dosage: DAILY DOSE 120 MG
     Dates: start: 20141028, end: 20210512
  2. LOXONIN [Concomitant]
     Active Substance: LOXOPROFEN SODIUM
     Indication: BACK PAIN

REACTIONS (5)
  - Anaemia [Recovered/Resolved]
  - Off label use [None]
  - Haemoglobin decreased [Recovered/Resolved]
  - Colon cancer [None]
  - Metastases to lung [None]

NARRATIVE: CASE EVENT DATE: 20141028
